FAERS Safety Report 6206350-0 (Version None)
Quarter: 2009Q2

REPORT INFORMATION
  Report Type: 
  Country: None (occurrence: None)
  Receive Date: 20090528
  Receipt Date: 20090515
  Transmission Date: 20091009
  Serious: Yes (Hospitalization)
  Sender: FDA-Public Use
  Company Number: RU-NOVOPROD-286152

PATIENT
  Sex: Female
  Weight: 61 kg

DRUGS (6)
  1. NOVOMIX 30 FLEXPEN [Suspect]
     Indication: TYPE 2 DIABETES MELLITUS
     Dosage: 38 IU, QD (22+16)
     Route: 058
     Dates: start: 20081225, end: 20090320
  2. NOVOMIX 30 FLEXPEN [Suspect]
     Dosage: 34 IU, QD
     Route: 058
     Dates: start: 20090320
  3. NOVOMIX 30 FLEXPEN [Suspect]
     Dosage: 36-38
     Route: 058
  4. EGILOC [Concomitant]
     Indication: ESSENTIAL HYPERTENSION
     Dosage: 12.5 MG, QD
     Route: 048
     Dates: start: 20060101
  5. PECTROL [Concomitant]
     Indication: CORONARY ARTERY DISEASE
     Dosage: 40 MG, QD
     Route: 048
     Dates: start: 20080101
  6. ASPIRIN [Concomitant]
     Indication: CORONARY ARTERY DISEASE
     Dosage: 100 MG, UNK
     Route: 048
     Dates: start: 20060101

REACTIONS (1)
  - CEREBROVASCULAR ACCIDENT [None]
